FAERS Safety Report 17168124 (Version 1)
Quarter: 2019Q4

REPORT INFORMATION
  Report Type: Spontaneous
  Country: RU (occurrence: RU)
  Receive Date: 20191218
  Receipt Date: 20191218
  Transmission Date: 20200122
  Serious: Yes (Hospitalization)
  Sender: FDA-Public Use
  Company Number: RU-B.I. PHARMACEUTICALS,INC./RIDGEFIELD-2019-BI-119685

PATIENT
  Age: 35 Year
  Sex: Male
  Weight: 100 kg

DRUGS (5)
  1. DIGOXIN. [Concomitant]
     Active Substance: DIGOXIN
     Indication: TACHYARRHYTHMIA
     Route: 048
     Dates: start: 20191031, end: 20191208
  2. ENALAPRIL [Concomitant]
     Active Substance: ENALAPRIL
     Indication: PRODUCT USED FOR UNKNOWN INDICATION
     Route: 065
     Dates: start: 20191031, end: 20191208
  3. BISOPROLOL [Concomitant]
     Active Substance: BISOPROLOL
     Indication: TACHYARRHYTHMIA
     Route: 048
     Dates: start: 20191031, end: 20191208
  4. TORASEMIDE [Concomitant]
     Active Substance: TORSEMIDE
     Indication: CARDIAC FAILURE CHRONIC
     Route: 048
     Dates: start: 20191031, end: 20191208
  5. PRADAXA [Suspect]
     Active Substance: DABIGATRAN ETEXILATE MESYLATE
     Indication: ATRIAL FIBRILLATION
     Route: 048
     Dates: start: 20191106

REACTIONS (2)
  - Aortic embolus [Not Recovered/Not Resolved]
  - Cardiac ventricular thrombosis [Not Recovered/Not Resolved]

NARRATIVE: CASE EVENT DATE: 20191108
